FAERS Safety Report 25206925 (Version 1)
Quarter: 2025Q2

REPORT INFORMATION
  Report Type: Spontaneous
  Country: AU (occurrence: AU)
  Receive Date: 20250417
  Receipt Date: 20250417
  Transmission Date: 20250717
  Serious: Yes (Death, Life-Threatening)
  Sender: MACLEODS
  Company Number: AU-MLMSERVICE-20250402-PI465376-00201-1

PATIENT

DRUGS (2)
  1. LIDOCAINE [Suspect]
     Active Substance: LIDOCAINE
     Indication: Local anaesthesia
     Route: 061
  2. Lignocaine/Adrenaline [Concomitant]
     Indication: Local anaesthesia
     Route: 065

REACTIONS (1)
  - Methaemoglobinaemia [Fatal]
